FAERS Safety Report 6153550-4 (Version None)
Quarter: 2009Q2

REPORT INFORMATION
  Report Type: 
  Country: None (occurrence: None)
  Receive Date: 20090409
  Receipt Date: 20090409
  Transmission Date: 20091009
  Serious: Yes (Death)
  Sender: FDA-Public Use
  Company Number: None

PATIENT
  Age: 4 Year
  Sex: Male
  Weight: 17 kg

DRUGS (7)
  1. NIFURTIMOX 120MG TABS [Suspect]
     Indication: MEDULLOBLASTOMA
     Dosage: 30MG/KG/DAY PO DIV TID
     Route: 048
     Dates: start: 20090217, end: 20090310
  2. NIFURTIMOX 120MG TABS [Suspect]
     Indication: METASTATIC NEOPLASM
     Dosage: 30MG/KG/DAY PO DIV TID
     Route: 048
     Dates: start: 20090217, end: 20090310
  3. KEPPRA [Concomitant]
  4. TRILEPTAL [Concomitant]
  5. DILAUDID [Concomitant]
  6. METHADONE [Concomitant]
  7. NEURONTIN [Concomitant]

REACTIONS (8)
  - BONE PAIN [None]
  - CONVULSION [None]
  - DISEASE PROGRESSION [None]
  - HEPATOMEGALY [None]
  - JAUNDICE [None]
  - METASTASES TO KIDNEY [None]
  - METASTASES TO LIVER [None]
  - PAIN IN EXTREMITY [None]
